FAERS Safety Report 7859587-9 (Version None)
Quarter: 2011Q4

REPORT INFORMATION
  Report Type: 
  Country: None (occurrence: None)
  Receive Date: 20111027
  Receipt Date: 20111025
  Transmission Date: 20120403
  Serious: Yes (Other)
  Sender: FDA-Public Use
  Company Number: US-PFIZER INC-2011260226

PATIENT
  Sex: Male

DRUGS (1)
  1. ZOLOFT [Suspect]
     Dosage: UNK

REACTIONS (5)
  - PARANOIA [None]
  - FEAR [None]
  - HYPERAESTHESIA [None]
  - PAROSMIA [None]
  - HYPERGEUSIA [None]
